FAERS Safety Report 5036909-8 (Version None)
Quarter: 2006Q2

REPORT INFORMATION
  Report Type: 
  Country: None (occurrence: None)
  Receive Date: 20060622
  Receipt Date: 20060612
  Transmission Date: 20061013
  Serious: Yes (Hospitalization, Other)
  Sender: FDA-Public Use
  Company Number: HQWYE214214JUN06

PATIENT
  Age: 62 Year
  Sex: Female
  Weight: 63.11 kg

DRUGS (9)
  1. TEMSIROLIMUS (TEMSIROLIMUS, TABLET) [Suspect]
     Indication: BREAST CANCER METASTATIC
     Dosage: 10 MG 1X PER 1 DAY, ORAL
     Route: 048
     Dates: start: 20040609, end: 20060410
  2. ADVIL [Suspect]
     Indication: PAIN
     Dosage: 200 MG 3X PER 1 DAY
     Dates: start: 20040309, end: 20060427
  3. HYZAAR [Suspect]
     Indication: HYPERTENSION
     Dates: start: 20041120, end: 20060427
  4. ZOMETA [Suspect]
  5. NORVASC [Concomitant]
  6. TENORMIN [Concomitant]
  7. LETROZOLE/TEMSIROLIMUS (LETROZOLE/TEMSIROLIMUS) [Concomitant]
  8. ZELNORM [Concomitant]
  9. DOCUSATE SODIUM (DOCUSATE SODIUM) [Concomitant]

REACTIONS (3)
  - HYDRONEPHROSIS [None]
  - RENAL FAILURE ACUTE [None]
  - URETERIC OBSTRUCTION [None]
